FAERS Safety Report 24693367 (Version 1)
Quarter: 2024Q4

REPORT INFORMATION
  Report Type: Spontaneous
  Country: CA (occurrence: CA)
  Receive Date: 20241203
  Receipt Date: 20241203
  Transmission Date: 20250114
  Serious: Yes (Other)
  Sender: CELLTRION
  Company Number: CA-CELLTRION INC.-2024CA030265

PATIENT

DRUGS (2)
  1. ADALIMUMAB [Suspect]
     Active Substance: ADALIMUMAB
     Indication: Psoriatic arthropathy
     Dosage: 40 MG, 1 EVERY 10 DAYS
     Route: 058
  2. ADALIMUMAB [Suspect]
     Active Substance: ADALIMUMAB
     Dosage: 40 MG, 1 EVERY 10 DAYS
     Route: 058

REACTIONS (5)
  - Blood test abnormal [Unknown]
  - Diverticulum intestinal [Unknown]
  - Pain [Unknown]
  - Sepsis [Unknown]
  - Intentional product use issue [Unknown]
